FAERS Safety Report 5915746-3 (Version None)
Quarter: 2008Q4

REPORT INFORMATION
  Report Type: 
  Country: None (occurrence: None)
  Receive Date: 20081010
  Receipt Date: 20081006
  Transmission Date: 20090506
  Serious: No
  Sender: FDA-Public Use
  Company Number: US-B.I. PHARMACEUTICALS,INC./RIDGEFIELD-2008-BP-15409BP

PATIENT
  Age: 77 Year
  Sex: Male

DRUGS (5)
  1. RANITIDINE [Suspect]
     Indication: DYSPEPSIA
     Dosage: 75MG
     Route: 048
     Dates: start: 20080918, end: 20081001
  2. RANITIDINE [Suspect]
     Dosage: 150MG
     Route: 048
     Dates: start: 20081001
  3. COUMADIN [Concomitant]
     Indication: ATRIAL FIBRILLATION
  4. COREG [Concomitant]
     Indication: ATRIAL FIBRILLATION
  5. COZAAR [Concomitant]
     Indication: HYPERTENSION

REACTIONS (1)
  - DRUG INEFFECTIVE [None]
